FAERS Safety Report 8113017-0 (Version None)
Quarter: 2012Q1

REPORT INFORMATION
  Report Type: 
  Country: None (occurrence: None)
  Receive Date: 20120203
  Receipt Date: 20120123
  Transmission Date: 20120608
  Serious: Yes (Hospitalization, Other)
  Sender: FDA-Public Use
  Company Number: US-ELI_LILLY_AND_COMPANY-US201111009044

PATIENT
  Sex: Female
  Weight: 62.585 kg

DRUGS (1)
  1. FORTEO [Suspect]
     Indication: OSTEOPOROSIS
     Dosage: 20 UG, QD

REACTIONS (3)
  - PNEUMONIA [None]
  - ASTHMA [None]
  - LUNG DISORDER [None]
